FAERS Safety Report 7666000-3 (Version None)
Quarter: 2011Q3

REPORT INFORMATION
  Report Type: 
  Country: None (occurrence: None)
  Receive Date: 20110806
  Receipt Date: 20110317
  Transmission Date: 20111222
  Serious: No
  Sender: FDA-Public Use
  Company Number: US-ABBOTT-11P-163-0712393-00

PATIENT
  Sex: Female

DRUGS (5)
  1. TRICOR [Concomitant]
     Indication: PRODUCT USED FOR UNKNOWN INDICATION
  2. LONG ACTING LANTIS INSULIN [Concomitant]
     Indication: PRODUCT USED FOR UNKNOWN INDICATION
  3. NIASPAN [Suspect]
     Indication: BLOOD CHOLESTEROL INCREASED
     Dosage: 1000MG AT BEDTIME
     Dates: start: 20100901
  4. CRESTOR [Concomitant]
     Indication: PRODUCT USED FOR UNKNOWN INDICATION
  5. METFORMIN HCL [Concomitant]
     Indication: PRODUCT USED FOR UNKNOWN INDICATION

REACTIONS (6)
  - MYALGIA [None]
  - FLUSHING [None]
  - MUSCULAR WEAKNESS [None]
  - HYPERHIDROSIS [None]
  - ERYTHEMA [None]
  - FEELING HOT [None]
